FAERS Safety Report 23357490 (Version 1)
Quarter: 2024Q1

REPORT INFORMATION
  Report Type: Spontaneous
  Country: ES (occurrence: ES)
  Receive Date: 20240102
  Receipt Date: 20240102
  Transmission Date: 20240409
  Serious: Yes (Hospitalization, Other)
  Sender: FDA-Public Use
  Company Number: None

PATIENT
  Age: 34 Year
  Sex: Female
  Weight: 45 kg

DRUGS (1)
  1. ACETAMINOPHEN [Suspect]
     Active Substance: ACETAMINOPHEN
     Indication: Product used for unknown indication
     Dosage: 1 GRAM (15 TABLETS OF 1 G)
     Route: 065
     Dates: start: 20231211, end: 20231211

REACTIONS (2)
  - Hypertransaminasaemia [Recovering/Resolving]
  - Suicide attempt [Unknown]

NARRATIVE: CASE EVENT DATE: 20231211
